FAERS Safety Report 10172703 (Version 1)
Quarter: 2014Q2

REPORT INFORMATION
  Report Type: Spontaneous
  Country: FR (occurrence: FR)
  Receive Date: 20140515
  Receipt Date: 20140515
  Transmission Date: 20141212
  Serious: Yes (Other)
  Sender: FDA-Public Use
  Company Number: FR-ASTRAZENECA-2014SE31730

PATIENT
  Age: 59 Year
  Sex: Female

DRUGS (7)
  1. CRESTOR [Suspect]
     Indication: HYPERCHOLESTEROLAEMIA
     Route: 048
     Dates: start: 2012, end: 20131209
  2. SOLUPRED [Suspect]
     Route: 065
     Dates: start: 2006
  3. MYFORTIC [Concomitant]
  4. MYFORTIC [Concomitant]
  5. PROGRAF [Concomitant]
  6. PROGRAF [Concomitant]
  7. OROCAL D3 [Concomitant]

REACTIONS (1)
  - Tendon rupture [Recovering/Resolving]
